FAERS Safety Report 4878925-2 (Version None)
Quarter: 2006Q1

REPORT INFORMATION
  Report Type: 
  Country: None (occurrence: None)
  Receive Date: 20060112
  Receipt Date: 20060110
  Transmission Date: 20060701
  Serious: Yes (Other)
  Sender: FDA-Public Use
  Company Number: US-GLAXOSMITHKLINE-A0588538A

PATIENT
  Age: 56 Year
  Sex: Female

DRUGS (13)
  1. NICODERM CQ [Suspect]
     Dosage: 21MG UNKNOWN
     Route: 062
     Dates: start: 20060102, end: 20060105
  2. LORATADINE [Concomitant]
  3. SINGULAIR [Concomitant]
  4. PAXIL [Concomitant]
     Indication: DEPRESSION
  5. CATAPRES [Concomitant]
  6. VERAPAMIL [Concomitant]
     Indication: BLOOD PRESSURE
  7. SYNTHROID [Concomitant]
  8. LITHIUM [Concomitant]
  9. ACTONEL [Concomitant]
     Indication: OSTEOPOROSIS
  10. ZOCOR [Concomitant]
  11. DURATAB [Concomitant]
  12. EYE DROPS [Concomitant]
     Indication: GLAUCOMA
  13. LUNESTA [Concomitant]
     Indication: SLEEP DISORDER

REACTIONS (5)
  - DYSPNOEA [None]
  - HYPOAESTHESIA [None]
  - INJURY [None]
  - VISION BLURRED [None]
  - VISUAL ACUITY REDUCED [None]
